FAERS Safety Report 5934259-6 (Version None)
Quarter: 2008Q4

REPORT INFORMATION
  Report Type: 
  Country: None (occurrence: None)
  Receive Date: 20081029
  Receipt Date: 20081022
  Transmission Date: 20090506
  Serious: Yes (Death)
  Sender: FDA-Public Use
  Company Number: US-PURDUE-USA_2008_0035562

PATIENT
  Sex: Female

DRUGS (4)
  1. OXYCONTIN [Suspect]
     Indication: PAIN
     Dosage: UNK, UNK
  2. ACTIQ [Suspect]
     Indication: PAIN
     Dosage: 800 MCG, UNK
     Route: 002
  3. HYDROCODONE BITARTRATE [Suspect]
     Indication: PAIN
  4. MORPHINE SULFATE [Concomitant]

REACTIONS (2)
  - CARDIOTOXICITY [None]
  - MULTIPLE DRUG OVERDOSE ACCIDENTAL [None]
